FAERS Safety Report 10242422 (Version 1)
Quarter: 2014Q2

REPORT INFORMATION
  Report Type: Spontaneous
  Country: GB (occurrence: GB)
  Receive Date: 20140617
  Receipt Date: 20140617
  Transmission Date: 20141212
  Serious: Yes (Other)
  Sender: FDA-Public Use
  Company Number: GB-PFIZER INC-2014163649

PATIENT
  Age: 34 Year
  Sex: Female
  Weight: 63.5 kg

DRUGS (2)
  1. CHAMPIX [Suspect]
     Dosage: UNK STARTER PACK
     Route: 048
     Dates: start: 20140527, end: 20140605
  2. VENLAFAXINE HYDROCHLORIDE [Concomitant]
     Dosage: 150 MG, UNK

REACTIONS (1)
  - Haemorrhage urinary tract [Recovering/Resolving]
